FAERS Safety Report 7523041 (Version 3)
Quarter: 2012Q4

REPORT INFORMATION
  Report Type: Report from Study
  Country: US (occurrence: US)
  Receive Date: 20100803
  Receipt Date: 20121212
  Transmission Date: 20130627
  Serious: Yes (Hospitalization)
  Sender: FDA-Public Use
  Company Number: US-ABBOTT-10P-163-0640911-00

PATIENT
  Age: 26 Year
  Sex: Female
  Weight: 97.61 kg

DRUGS (9)
  1. HUMIRA 40 MG/ 0.8 ML PRE-FILLED SYRINGE [Suspect]
     Indication: PSORIATIC ARTHROPATHY
     Route: 050
     Dates: start: 20091119, end: 20100713
  2. HUMIRA 40 MG/ 0.8 ML PRE-FILLED SYRINGE [Suspect]
     Dates: start: 20091113, end: 20091118
  3. LEXAPRO [Suspect]
     Indication: DEPRESSION
     Route: 048
     Dates: start: 20091113, end: 20100713
  4. TRAZODONE HCL [Concomitant]
     Indication: DEPRESSION
     Dosage: 4 in one day as needed
     Route: 048
     Dates: start: 20100301, end: 20100713
  5. ENBREL [Concomitant]
     Indication: PSORIATIC ARTHROPATHY
     Route: 050
     Dates: start: 20091113, end: 20091118
  6. MUCINEX [Concomitant]
     Indication: NASOPHARYNGITIS
     Dosage: 1-2 pills QD
     Route: 048
     Dates: start: 20100207, end: 20100213
  7. PRENATAL VITAMINS [Concomitant]
     Indication: PRODUCT USED FOR UNKNOWN INDICATION
     Dosage: 1 pill QD
     Dates: start: 20091113, end: 20100713
  8. CAFFEINE [Concomitant]
     Indication: PRODUCT USED FOR UNKNOWN INDICATION
     Dosage: 2.5 servings Mountain Dew daily
     Route: 048
     Dates: start: 20091203, end: 20100713
  9. CAFFEINE [Concomitant]
     Dosage: 5.67 servings Mountain Dew daily
     Route: 048
     Dates: start: 20091113, end: 20091202

REACTIONS (8)
  - Caesarean section [Unknown]
  - Fall [Unknown]
  - Urinary tract infection [Unknown]
  - Dyspepsia [Unknown]
  - Fungal infection [Unknown]
  - Respiratory tract infection [Unknown]
  - Premature delivery [None]
  - Exposure during pregnancy [None]
